FAERS Safety Report 18940956 (Version 2)
Quarter: 2021Q1

REPORT INFORMATION
  Report Type: Spontaneous
  Country: US (occurrence: US)
  Receive Date: 20210225
  Receipt Date: 20210225
  Transmission Date: 20210420
  Serious: Yes (Other)
  Sender: FDA-Public Use
  Company Number: US-CELGENEUS-USA-20210204309

PATIENT
  Age: 71 Year
  Sex: Female

DRUGS (1)
  1. IDHIFA [Suspect]
     Active Substance: ENASIDENIB MESYLATE
     Indication: ACUTE MYELOID LEUKAEMIA
     Dosage: 50 MILLIGRAM
     Route: 048
     Dates: start: 20210128

REACTIONS (6)
  - Full blood count increased [Unknown]
  - Nausea [Unknown]
  - Vomiting [Unknown]
  - Varicose vein ruptured [Unknown]
  - Pain [Unknown]
  - Infected varicose vein [Unknown]

NARRATIVE: CASE EVENT DATE: 2021
